FAERS Safety Report 6830016-7 (Version None)
Quarter: 2010Q3

REPORT INFORMATION
  Report Type: 
  Country: None (occurrence: None)
  Receive Date: 20100711
  Receipt Date: 20100505
  Transmission Date: 20110219
  Serious: No
  Sender: FDA-Public Use
  Company Number: US-ALLERGAN-1005367US

PATIENT
  Age: 35 Year
  Sex: Female

DRUGS (4)
  1. LATISSE [Suspect]
     Indication: GROWTH OF EYELASHES
     Dosage: 1 GTT, QHS
     Route: 061
     Dates: start: 20100317
  2. LATISSE [Suspect]
     Dosage: 1 GTT, QOD
     Route: 061
  3. LATISSE [Suspect]
     Dosage: 1 GTT, EVERY 3 DAYS
     Route: 061
  4. ZYRTEC [Concomitant]
     Indication: HYPERSENSITIVITY

REACTIONS (2)
  - EYELIDS PRURITUS [None]
  - INAPPROPRIATE SCHEDULE OF DRUG ADMINISTRATION [None]
